FAERS Safety Report 6667661-8 (Version None)
Quarter: 2010Q2

REPORT INFORMATION
  Report Type: 
  Country: None (occurrence: None)
  Receive Date: 20100405
  Receipt Date: 20100329
  Transmission Date: 20101027
  Serious: Yes (Hospitalization)
  Sender: FDA-Public Use
  Company Number: B0643660A

PATIENT
  Sex: Male

DRUGS (11)
  1. AUGMENTIN '125' [Suspect]
     Route: 065
     Dates: start: 20100103, end: 20100105
  2. DI-HYDAN [Suspect]
     Indication: STATUS EPILEPTICUS
     Dosage: 100MG TWICE PER DAY
     Route: 048
     Dates: start: 20100103, end: 20100104
  3. TRIATEC [Concomitant]
     Indication: DRUG USE FOR UNKNOWN INDICATION
     Dosage: 10MG UNKNOWN
     Route: 065
  4. KARDEGIC [Concomitant]
     Indication: DRUG USE FOR UNKNOWN INDICATION
     Dosage: 300MG UNKNOWN
     Route: 065
  5. TAHOR [Concomitant]
     Indication: DRUG USE FOR UNKNOWN INDICATION
     Dosage: 80MG UNKNOWN
     Route: 065
  6. ESIDRIX [Concomitant]
     Indication: DRUG USE FOR UNKNOWN INDICATION
     Dosage: 25MG UNKNOWN
     Route: 065
  7. VALIUM [Concomitant]
     Dosage: 10MG UNKNOWN
     Route: 065
     Dates: start: 20100103
  8. MIDAZOLAM HCL [Concomitant]
     Indication: SEDATION
     Route: 065
     Dates: start: 20100103
  9. FENTANYL [Concomitant]
     Indication: SEDATION
     Route: 065
     Dates: start: 20100103
  10. NORADRENALINE [Concomitant]
     Indication: CIRCULATORY COLLAPSE
     Dosage: 1MGH UNKNOWN
     Route: 065
     Dates: start: 20100103
  11. PRODILANTIN [Concomitant]
     Indication: DRUG USE FOR UNKNOWN INDICATION
     Route: 065
     Dates: start: 20100103

REACTIONS (8)
  - DRUG RASH WITH EOSINOPHILIA AND SYSTEMIC SYMPTOMS [None]
  - EOSINOPHILIA [None]
  - HEPATIC FUNCTION ABNORMAL [None]
  - LEUKOCYTOSIS [None]
  - RASH [None]
  - RENAL FAILURE [None]
  - SKIN EXFOLIATION [None]
  - TOXIC SKIN ERUPTION [None]
